FAERS Safety Report 10314297 (Version 1)
Quarter: 2014Q3

REPORT INFORMATION
  Report Type: Spontaneous
  Country: US (occurrence: US)
  Receive Date: 20140718
  Receipt Date: 20140718
  Transmission Date: 20150326
  Serious: Yes (Death)
  Sender: FDA-Public Use
  Company Number: US-GLAXOSMITHKLINE-A1081510A

PATIENT
  Age: 54 Year
  Sex: Female

DRUGS (1)
  1. HYCAMTIN [Suspect]
     Active Substance: TOPOTECAN HYDROCHLORIDE
     Indication: BRONCHIAL CARCINOMA
     Dosage: 3MG CYCLIC

REACTIONS (1)
  - Death [Fatal]

NARRATIVE: CASE EVENT DATE: 20140706
